FAERS Safety Report 26198438 (Version 1)
Quarter: 2025Q4

REPORT INFORMATION
  Report Type: Spontaneous
  Country: JP (occurrence: JP)
  Receive Date: 20251224
  Receipt Date: 20251224
  Transmission Date: 20260117
  Serious: Yes (Death)
  Sender: ELI LILLY AND COMPANY
  Company Number: JP-ELI_LILLY_AND_COMPANY-JP202512027943

PATIENT
  Age: 81 Year
  Sex: Female

DRUGS (2)
  1. KISUNLA [Suspect]
     Active Substance: DONANEMAB-AZBT
     Indication: Dementia Alzheimer^s type
     Dosage: UNK
     Route: 041
     Dates: start: 20250730
  2. KISUNLA [Suspect]
     Active Substance: DONANEMAB-AZBT
     Dosage: 700 MG
     Route: 041

REACTIONS (1)
  - Chronic obstructive pulmonary disease [Fatal]
